FAERS Safety Report 6231881-7 (Version None)
Quarter: 2009Q2

REPORT INFORMATION
  Report Type: 
  Country: None (occurrence: None)
  Receive Date: 20090616
  Receipt Date: 20090612
  Transmission Date: 20091009
  Serious: Yes (Death, Hospitalization, Other)
  Sender: FDA-Public Use
  Company Number: SE-BRISTOL-MYERS SQUIBB COMPANY-14626899

PATIENT
  Age: 41 Year
  Sex: Male

DRUGS (11)
  1. ABILIFY [Suspect]
     Indication: DELUSIONAL DISORDER, PERSECUTORY TYPE
     Dosage: INCREASED TO 10MG
     Dates: start: 20061127
  2. PAROXETINE HCL [Suspect]
     Indication: SEXUAL DYSFUNCTION
  3. ZYPREXA [Suspect]
     Dosage: COATED TABS
  4. XANOR [Suspect]
     Dosage: XANOR DEPOT TABS; INCREASED TO 2MG
  5. NOZINAN [Suspect]
     Dosage: TABLET FORM
  6. PROPAVAN [Suspect]
  7. IMOVANE [Suspect]
  8. HALDOL [Suspect]
     Dosage: 1 DF= 5 MG/ML SOLUTION FOR INJECTION
  9. STESOLID [Suspect]
     Dosage: TABLET FORM
  10. IKTORIVIL [Suspect]
     Dosage: TABLET FORM
  11. CISORDINOL [Suspect]
     Dosage: ACUTARD SOLUTION FOR INJECTION 50 MG/ML

REACTIONS (6)
  - DEATH [None]
  - DELUSIONAL DISORDER, PERSECUTORY TYPE [None]
  - PRODUCTIVE COUGH [None]
  - RESPIRATORY DEPRESSION [None]
  - SEDATION [None]
  - SEXUAL DYSFUNCTION [None]
